FAERS Safety Report 13833194 (Version 1)
Quarter: 2017Q3

REPORT INFORMATION
  Report Type: Spontaneous
  Country: US (occurrence: US)
  Receive Date: 20170803
  Receipt Date: 20170803
  Transmission Date: 20171127
  Serious: No
  Sender: FDA-Public Use
  Company Number: None

PATIENT
  Age: 55 Year
  Sex: Male
  Weight: 76.05 kg

DRUGS (1)
  1. REPATHA [Suspect]
     Active Substance: EVOLOCUMAB
     Indication: HYPERLIPIDAEMIA
     Dosage: ?          OTHER FREQUENCY:Q 2 WEEKS.;?
     Route: 058
     Dates: start: 20170725

REACTIONS (4)
  - Hypersensitivity [None]
  - Pain in jaw [None]
  - Trismus [None]
  - Therapy partial responder [None]

NARRATIVE: CASE EVENT DATE: 20170725
